FAERS Safety Report 11325752 (Version 1)
Quarter: 2015Q3

REPORT INFORMATION
  Report Type: Spontaneous
  Country: GB (occurrence: GB)
  Receive Date: 20150731
  Receipt Date: 20150731
  Transmission Date: 20151125
  Serious: Yes (Hospitalization, Disabling, Other)
  Sender: FDA-Public Use
  Company Number: GB-ASTRAZENECA-2015SE73218

PATIENT
  Age: 70 Year
  Sex: Male
  Weight: 86 kg

DRUGS (1)
  1. OMEPRAZOL [Suspect]
     Active Substance: OMEPRAZOLE
     Indication: DYSPEPSIA
     Route: 048
     Dates: start: 20150301, end: 20150423

REACTIONS (4)
  - Abnormal loss of weight [Recovered/Resolved with Sequelae]
  - Blood creatinine increased [Unknown]
  - Tubulointerstitial nephritis [Recovered/Resolved with Sequelae]
  - Drug ineffective [Unknown]
